FAERS Safety Report 4308545-X (Version None)
Quarter: 2004Q1

REPORT INFORMATION
  Report Type: 
  Country: None (occurrence: None)
  Receive Date: 20040227
  Receipt Date: 20030113
  Transmission Date: 20041129
  Serious: No
  Sender: FDA-Public Use
  Company Number: 1667204A

PATIENT
  Age: 17 Year
  Sex: Female

DRUGS (1)
  1. UNSPECIFIED LOPERAMIDE PRODUCT [Suspect]
     Dosage: UNKNOWN DOSE, ONCE, PO
     Route: 048

REACTIONS (1)
  - ANAPHYLACTOID REACTION [None]
